FAERS Safety Report 9600778 (Version 1)
Quarter: 2013Q4

REPORT INFORMATION
  Report Type: Spontaneous
  Country: US (occurrence: US)
  Receive Date: 20131004
  Receipt Date: 20131004
  Transmission Date: 20140711
  Serious: No
  Sender: FDA-Public Use
  Company Number: US-AMGEN-USASP2013037538

PATIENT
  Age: 61 Year
  Sex: Female

DRUGS (8)
  1. ENBREL [Suspect]
     Indication: PRODUCT USED FOR UNKNOWN INDICATION
     Dosage: 50 MG, QWK
     Route: 058
  2. METHOTREXATE [Concomitant]
     Dosage: 2.5 MG, UNK
  3. NAPROXEN [Concomitant]
     Dosage: 250 MG, UNK
  4. FOLIC ACID [Concomitant]
     Dosage: UNK
  5. MULTIVITAMINS, PLAIN [Concomitant]
     Dosage: UNK
  6. VITAMIN C                          /00008001/ [Concomitant]
     Dosage: UNK
  7. VITAMIN E                          /00110501/ [Concomitant]
     Dosage: 1000 UNIT, UNK
  8. CALCIUM [Concomitant]
     Dosage: 500 UNK, UNK

REACTIONS (1)
  - Sinusitis [Recovering/Resolving]
